FAERS Safety Report 9796296 (Version 1)
Quarter: 2014Q1

REPORT INFORMATION
  Report Type: Spontaneous
  Country: US (occurrence: US)
  Receive Date: 20140103
  Receipt Date: 20140103
  Transmission Date: 20141002
  Serious: Yes (Hospitalization, Other)
  Sender: FDA-Public Use
  Company Number: US-AMGEN-USASP2013091107

PATIENT
  Age: 61 Year
  Sex: Female

DRUGS (2)
  1. ENBREL [Suspect]
     Indication: RHEUMATOID ARTHRITIS
     Dosage: 50 MG, QWK
     Route: 065
     Dates: start: 20050101
  2. METHOTREXATE [Concomitant]
     Dosage: 1 MG, QWK

REACTIONS (13)
  - Hypersomnia [Recovered/Resolved]
  - Aphagia [Recovered/Resolved]
  - Fluid intake reduced [Recovered/Resolved]
  - Lung disorder [Recovered/Resolved]
  - Visual impairment [Not Recovered/Not Resolved]
  - Dizziness [Recovered/Resolved]
  - Headache [Recovered/Resolved]
  - Disturbance in attention [Recovered/Resolved]
  - Malaise [Recovered/Resolved]
  - Mental impairment [Recovered/Resolved]
  - Cellulitis [Recovered/Resolved]
  - Muscular weakness [Not Recovered/Not Resolved]
  - Injection site reaction [Not Recovered/Not Resolved]
